FAERS Safety Report 8124728-5 (Version None)
Quarter: 2012Q1

REPORT INFORMATION
  Report Type: 
  Country: None (occurrence: None)
  Receive Date: 20120209
  Receipt Date: 20120130
  Transmission Date: 20120608
  Serious: Yes (Other)
  Sender: FDA-Public Use
  Company Number: US-PERRIGO-12US000887

PATIENT
  Sex: Female

DRUGS (1)
  1. NAPROXEN SODIUM AND PSEUDOEPHEDRINE HYDROCHLORIDE [Suspect]
     Indication: SEASONAL ALLERGY
     Dosage: 1 TABLET, AS NEEDED
     Route: 048
     Dates: start: 20100101

REACTIONS (5)
  - ABDOMINAL PAIN UPPER [None]
  - HYPERTENSION [None]
  - BLOOD COUNT ABNORMAL [None]
  - HAEMATOCHEZIA [None]
  - GASTRIC HAEMORRHAGE [None]
